FAERS Safety Report 6935623-9 (Version None)
Quarter: 2010Q3

REPORT INFORMATION
  Report Type: 
  Country: None (occurrence: None)
  Receive Date: 20100823
  Receipt Date: 20100816
  Transmission Date: 20110219
  Serious: Yes (Death, Hospitalization)
  Sender: FDA-Public Use
  Company Number: FR-WYE-G06546110

PATIENT
  Age: 79 Year
  Sex: Female

DRUGS (12)
  1. PIPERACILLIN AND TAZOBACTAM [Suspect]
     Indication: LIVER ABSCESS
     Route: 042
     Dates: start: 20100620, end: 20100709
  2. PIPERACILLIN AND TAZOBACTAM [Suspect]
     Indication: HEPATIC CYST INFECTION
  3. LANTUS [Concomitant]
     Dosage: UNKNOWN
  4. HUMALOG [Concomitant]
     Dosage: UNKNOWN
  5. CALCIPARINE [Concomitant]
     Dosage: UNKNOWN
  6. GENTAMICIN SULFATE [Suspect]
     Indication: LIVER ABSCESS
     Route: 042
     Dates: start: 20100620, end: 20100709
  7. GENTAMICIN SULFATE [Suspect]
     Indication: HEPATIC CYST INFECTION
  8. CORDARONE [Concomitant]
     Dosage: UNKNOWN
  9. ADANCOR [Concomitant]
     Dosage: UNKNOWN
  10. NEXIUM [Concomitant]
     Dosage: UNKNOWN
  11. RENAGEL [Concomitant]
     Dosage: UNKNOWN
  12. ACETAMINOPHEN [Concomitant]
     Dosage: UNKNOWN

REACTIONS (3)
  - AGRANULOCYTOSIS [None]
  - HISTIOCYTOSIS HAEMATOPHAGIC [None]
  - MYELODYSPLASTIC SYNDROME [None]
